FAERS Safety Report 4939431-X (Version None)
Quarter: 2006Q1

REPORT INFORMATION
  Report Type: 
  Country: None (occurrence: None)
  Receive Date: 20060310
  Receipt Date: 20050830
  Transmission Date: 20060701
  Serious: Yes (Death, Life-Threatening, Hospitalization, Other)
  Sender: FDA-Public Use
  Company Number: DE-BRISTOL-MYERS SQUIBB COMPANY-13095997

PATIENT
  Age: 54 Year
  Sex: Female
  Weight: 65 kg

DRUGS (7)
  1. PACLITAXEL [Suspect]
     Indication: BREAST CANCER
     Route: 042
     Dates: start: 20050805, end: 20050805
  2. CAPECITABINE [Suspect]
     Indication: BREAST CANCER
     Route: 048
     Dates: start: 20050715, end: 20050728
  3. CLEMASTINE [Concomitant]
     Indication: PREMEDICATION
     Route: 042
     Dates: start: 20050805, end: 20050805
  4. RANITIDINE [Concomitant]
     Indication: PREMEDICATION
     Route: 042
     Dates: start: 20050805, end: 20050805
  5. GRANISETRON [Concomitant]
     Indication: PREMEDICATION
     Route: 042
     Dates: start: 20050805, end: 20050805
  6. DEXAMETHASONE [Concomitant]
     Indication: PREMEDICATION
     Route: 042
     Dates: start: 20050805, end: 20050805
  7. DARBEPOETIN ALFA [Concomitant]
     Route: 058
     Dates: start: 20050805, end: 20050805

REACTIONS (4)
  - ACUTE RESPIRATORY DISTRESS SYNDROME [None]
  - ENDOCARDITIS [None]
  - RESPIRATORY FAILURE [None]
  - STAPHYLOCOCCAL SEPSIS [None]
